FAERS Safety Report 9776240 (Version 3)
Quarter: 2014Q2

REPORT INFORMATION
  Report Type: Spontaneous
  Country: IT (occurrence: IT)
  Receive Date: 20131220
  Receipt Date: 20140421
  Transmission Date: 20141212
  Serious: Yes (Hospitalization)
  Sender: FDA-Public Use
  Company Number: IT-BRISTOL-MYERS SQUIBB COMPANY-19899574

PATIENT
  Age: 82 Year
  Sex: Male

DRUGS (9)
  1. COUMADIN TABS 5 MG [Suspect]
     Indication: ATRIAL FLUTTER
     Dosage: 1DF=1 UNIT
     Route: 048
     Dates: start: 20130101, end: 20130617
  2. DIFLUCAN [Suspect]
     Indication: FUNGAL SKIN INFECTION
     Dosage: ^200 MG CAPS^
     Route: 048
     Dates: start: 20130614, end: 20130617
  3. TACHIDOL [Suspect]
     Indication: FUNGAL INFECTION
     Dosage: 1DF=500/30MG GRANULATE DOSAGE/3/UNIT/ORALLY
     Route: 048
     Dates: start: 20130614, end: 20130616
  4. METFORMIN HCL [Concomitant]
  5. CARDICOR [Concomitant]
     Dosage: TABS
  6. LANSOX [Concomitant]
     Dosage: CAPS
  7. ZYLORIC [Concomitant]
     Dosage: TABS
  8. HUMALOG [Concomitant]
     Dosage: 1DF= 100 U/ML INJECTION SOLUTION
     Route: 042
  9. MITTOVAL [Concomitant]

REACTIONS (4)
  - Hypersensitivity [Unknown]
  - Somnolence [Unknown]
  - Decreased appetite [Unknown]
  - Overdose [Unknown]
